FAERS Safety Report 24428415 (Version 1)
Quarter: 2024Q4

REPORT INFORMATION
  Report Type: Spontaneous
  Country: US (occurrence: US)
  Receive Date: 20241011
  Receipt Date: 20241011
  Transmission Date: 20250114
  Serious: No
  Sender: PFIZER
  Company Number: US-PFIZER INC-PV202400131151

PATIENT
  Age: 45 Year
  Sex: Female

DRUGS (2)
  1. DIFLUCAN [Suspect]
     Active Substance: FLUCONAZOLE
     Indication: Fungal infection
     Dosage: UNK
  2. BORIC ACID [Suspect]
     Active Substance: BORIC ACID
     Indication: Fungal infection
     Dosage: UNK

REACTIONS (1)
  - Drug resistance [Unknown]
